FAERS Safety Report 17804925 (Version 1)
Quarter: 2020Q2

REPORT INFORMATION
  Report Type: Report from Study
  Country: TH (occurrence: TH)
  Receive Date: 20200519
  Receipt Date: 20200519
  Transmission Date: 20200714
  Serious: Yes (Hospitalization)
  Sender: FDA-Public Use
  Company Number: TH-SEATTLE GENETICS-2020SGN02177

PATIENT
  Sex: Male

DRUGS (1)
  1. BRENTUXIMAB VEDOTIN-MPI [Suspect]
     Active Substance: BRENTUXIMAB VEDOTIN
     Indication: HODGKIN^S DISEASE
     Dosage: 200 MG, Q3WEEKS
     Route: 065
     Dates: start: 20200407

REACTIONS (2)
  - Blood glucose increased [Unknown]
  - Acidosis [Unknown]
